FAERS Safety Report 8950374 (Version 1)
Quarter: 2012Q4

REPORT INFORMATION
  Report Type: Spontaneous
  Country: US (occurrence: None)
  Receive Date: 20121130
  Receipt Date: 20121130
  Transmission Date: 20130627
  Serious: Yes (Life-Threatening, Hospitalization)
  Sender: FDA-Public Use
  Company Number: None

PATIENT
  Age: 44 Year
  Sex: Female
  Weight: 59.42 kg

DRUGS (1)
  1. SUMATRIPTAN [Suspect]
     Indication: HEADACHE
     Dates: start: 20121127, end: 20121127

REACTIONS (2)
  - Dyspnoea [None]
  - Speech disorder [None]
